FAERS Safety Report 15884954 (Version 1)
Quarter: 2019Q1

REPORT INFORMATION
  Report Type: Spontaneous
  Country: IT (occurrence: IT)
  Receive Date: 20190129
  Receipt Date: 20190129
  Transmission Date: 20190417
  Serious: Yes (Other)
  Sender: FDA-Public Use
  Company Number: IT-MYLANLABS-2019M1007456

PATIENT
  Age: 77 Year
  Sex: Female
  Weight: 78 kg

DRUGS (5)
  1. NEBIVOLOL. [Suspect]
     Active Substance: NEBIVOLOL
     Indication: HYPERTENSION
     Dosage: 5 MILLIGRAM, QD
     Route: 065
  2. MICARDIS [Suspect]
     Active Substance: TELMISARTAN
     Indication: HYPERTENSION
     Dosage: 80 MILLIGRAM, QD
     Route: 065
  3. ASPIRIN                            /00002701/ [Suspect]
     Active Substance: ASPIRIN
     Indication: CAROTID ARTERY DISEASE
     Dosage: UNK
     Route: 065
  4. METFORMIN [Suspect]
     Active Substance: METFORMIN HYDROCHLORIDE
     Indication: DIABETES MELLITUS
     Dosage: UNK
     Route: 065
  5. AMLODIPINE [Suspect]
     Active Substance: AMLODIPINE BESYLATE
     Indication: HYPERTENSION
     Dosage: 5 MILLIGRAM, QD
     Route: 065

REACTIONS (4)
  - Left atrial dilatation [Unknown]
  - Left ventricular hypertrophy [Unknown]
  - Mitral valve incompetence [Unknown]
  - Atrial fibrillation [Unknown]
